FAERS Safety Report 21717376 (Version 3)
Quarter: 2024Q1

REPORT INFORMATION
  Report Type: Spontaneous
  Country: HR (occurrence: HR)
  Receive Date: 20221212
  Receipt Date: 20240124
  Transmission Date: 20240410
  Serious: Yes (Other)
  Sender: FDA-Public Use
  Company Number: HR-009507513-2212HRV003772

PATIENT
  Sex: Male

DRUGS (3)
  1. KEYTRUDA [Suspect]
     Active Substance: PEMBROLIZUMAB
     Indication: Adenocarcinoma
     Dosage: 200 MILLIGRAM, IV / 3 WEEKS
     Route: 042
     Dates: start: 202110
  2. REMICADE [Suspect]
     Active Substance: INFLIXIMAB
  3. NIVOLUMAB [Suspect]
     Active Substance: NIVOLUMAB

REACTIONS (17)
  - Bronchiolitis [Unknown]
  - Intestinal perforation [Unknown]
  - Pulmonary cavitation [Unknown]
  - Pulmonary alveolar haemorrhage [Unknown]
  - Pneumocystis jirovecii pneumonia [Unknown]
  - Chlamydial infection [Unknown]
  - Radiation pneumonitis [Unknown]
  - Malignant neoplasm progression [Unknown]
  - Pericardial effusion [Unknown]
  - Intestinal perforation [Unknown]
  - Lymphadenopathy [Unknown]
  - Pericarditis [Unknown]
  - Pleural effusion [Unknown]
  - Pneumonitis [Unknown]
  - Pleural effusion [Unknown]
  - COVID-19 [Unknown]
  - Influenza [Unknown]

NARRATIVE: CASE EVENT DATE: 20221101
